FAERS Safety Report 9006409 (Version 1)
Quarter: 2013Q1

REPORT INFORMATION
  Report Type: Spontaneous
  Country: US (occurrence: US)
  Receive Date: 20130110
  Receipt Date: 20130110
  Transmission Date: 20140127
  Serious: Yes (Other)
  Sender: FDA-Public Use
  Company Number: US-BAYER-2013-001286

PATIENT
  Age: 83 Year
  Sex: Male
  Weight: 72.56 kg

DRUGS (1)
  1. PHILLIPS^ MILK OF MAGNESIA [Suspect]
     Indication: CONSTIPATION
     Dosage: 4 DF, QD TBSP
     Route: 048
     Dates: start: 201212

REACTIONS (1)
  - Faeces discoloured [Not Recovered/Not Resolved]
